FAERS Safety Report 10010012 (Version 1)
Quarter: 2014Q1

REPORT INFORMATION
  Report Type: Spontaneous
  Country: US (occurrence: US)
  Receive Date: 20140312
  Receipt Date: 20140312
  Transmission Date: 20141002
  Serious: No
  Sender: FDA-Public Use
  Company Number: US-INCYTE CORPORATION-2013IN001101

PATIENT
  Age: 57 Year
  Sex: Male

DRUGS (9)
  1. JAKAFI [Suspect]
     Indication: MYELOFIBROSIS
     Dosage: 5 MG, QD
     Route: 048
  2. COUMADIN [Concomitant]
  3. CARVEDILOL [Concomitant]
  4. DIGOXIN [Concomitant]
  5. LOSARTAN [Concomitant]
  6. ALLOPURINOL [Concomitant]
  7. SPIRONOLACTONE [Concomitant]
  8. BUMEX [Concomitant]
  9. POTASSIUM CHLORIDE [Concomitant]

REACTIONS (1)
  - Prothrombin time shortened [Unknown]
